FAERS Safety Report 8142748-1 (Version None)
Quarter: 2012Q1

REPORT INFORMATION
  Report Type: 
  Country: None (occurrence: None)
  Receive Date: 20120216
  Receipt Date: 20120206
  Transmission Date: 20120608
  Serious: Yes (Hospitalization)
  Sender: FDA-Public Use
  Company Number: US-ACTELION-A-NJ2012-59706

PATIENT

DRUGS (6)
  1. REVATIO [Concomitant]
  2. CALCIUM CHANNEL BLOCKERS [Concomitant]
  3. VIAGRA [Concomitant]
  4. TRACLEER [Suspect]
     Indication: PULMONARY ARTERIAL HYPERTENSION
     Dosage: 125 MG, BID
     Route: 048
     Dates: start: 20061113
  5. DIGOXIN [Concomitant]
  6. RESTASIS [Concomitant]

REACTIONS (5)
  - OPEN REDUCTION OF FRACTURE [None]
  - ACUTE ABDOMEN [None]
  - PANCREATITIS [None]
  - FALL [None]
  - HIP FRACTURE [None]
